FAERS Safety Report 9293323 (Version 1)
Quarter: 2013Q2

REPORT INFORMATION
  Report Type: Spontaneous
  Country: ES (occurrence: ES)
  Receive Date: 20130516
  Receipt Date: 20130516
  Transmission Date: 20140414
  Serious: Yes (Hospitalization)
  Sender: FDA-Public Use
  Company Number: ES-ELI_LILLY_AND_COMPANY-ES201305002829

PATIENT
  Age: 85 Year
  Sex: Female
  Weight: 50 kg

DRUGS (8)
  1. FORSTEO [Suspect]
     Indication: OSTEOPOROSIS
     Dosage: 20 UG, QD
     Route: 058
     Dates: start: 20130219, end: 20130507
  2. EUTIROX [Concomitant]
     Indication: HYPOTHYROIDISM
     Dosage: 50-75 UG, QD
     Route: 048
  3. SIMVASTATIN [Concomitant]
     Indication: BLOOD CHOLESTEROL INCREASED
     Dosage: UNK, QD
     Route: 048
  4. LORATADINE [Concomitant]
     Indication: HYPERSENSITIVITY
     Dosage: UNK, QD
     Route: 048
  5. BOI K [Concomitant]
     Dosage: UNK, QD
     Route: 048
  6. BLOKIUM [Concomitant]
     Dosage: UNK, QD
     Route: 048
  7. ALPRAZOLAM [Concomitant]
     Dosage: UNK, BID
     Route: 048
  8. SUMIAL [Concomitant]
     Dosage: UNK, QD
     Route: 048

REACTIONS (2)
  - Disorientation [Not Recovered/Not Resolved]
  - Lung infection [Not Recovered/Not Resolved]
